FAERS Safety Report 8063096-4 (Version None)
Quarter: 2012Q1

REPORT INFORMATION
  Report Type: 
  Country: None (occurrence: None)
  Receive Date: 20120109
  Receipt Date: 20111226
  Transmission Date: 20120608
  Serious: Yes (Death, Life-Threatening, Other)
  Sender: FDA-Public Use
  Company Number: 2011MA017999

PATIENT
  Sex: Male
  Weight: 65.7716 kg

DRUGS (26)
  1. LISINOPRIL [Concomitant]
  2. CALCIUM CARBONATE [Concomitant]
  3. FUROSEMIDE [Concomitant]
  4. COUMADIN [Concomitant]
  5. MULTI-VITAMINS [Concomitant]
  6. TOLAZAMIDE [Concomitant]
  7. ASPIRIN [Concomitant]
  8. MULTI-VITAMINS [Concomitant]
  9. CAPTOPRIL [Concomitant]
  10. VITAMIN E [Concomitant]
  11. RANITIDINE [Concomitant]
  12. DIGOXIN [Suspect]
     Indication: ATRIAL FIBRILLATION
     Dosage: 0.25 MG;QD;PO
     Route: 048
     Dates: start: 20071108
  13. LOVASTATIN [Concomitant]
  14. METOPROLOL TARTRATE [Concomitant]
  15. TOPROL-XL [Concomitant]
  16. WARFARIN SODIUM [Concomitant]
  17. OMEPRAZOLE [Concomitant]
  18. CODEINE-GUAIFENESIN [Concomitant]
  19. NITROGLYCERIN [Concomitant]
  20. HYDROCHLOROTHIAZIDE [Concomitant]
  21. ASPIRIN [Concomitant]
  22. CARTIA XT [Concomitant]
  23. DILTIAZEM HCL [Concomitant]
  24. POTASSIUM CHLORIDE [Concomitant]
  25. COREG [Concomitant]
  26. CARVEDILOL [Concomitant]

REACTIONS (40)
  - LACERATION [None]
  - SYSTOLIC HYPERTENSION [None]
  - HYPOAESTHESIA [None]
  - ATRIAL FIBRILLATION [None]
  - PNEUMONIA [None]
  - PULMONARY VALVE INCOMPETENCE [None]
  - FATIGUE [None]
  - SLEEP DISORDER [None]
  - ASTHENIA [None]
  - CONDUCTION DISORDER [None]
  - TRICUSPID VALVE INCOMPETENCE [None]
  - HERPES ZOSTER [None]
  - VISION BLURRED [None]
  - UPPER RESPIRATORY TRACT INFECTION [None]
  - VENTRICULAR EXTRASYSTOLES [None]
  - INTERNATIONAL NORMALISED RATIO DECREASED [None]
  - NASAL CONGESTION [None]
  - MYOCARDIAL INFARCTION [None]
  - CARDIAC FAILURE CONGESTIVE [None]
  - CARDIAC MURMUR [None]
  - BRONCHITIS [None]
  - RHINITIS [None]
  - RASH ERYTHEMATOUS [None]
  - DYSPNOEA [None]
  - DYSPHAGIA [None]
  - TYPE V HYPERLIPIDAEMIA [None]
  - VOMITING [None]
  - PULMONARY HYPERTENSION [None]
  - HEART RATE INCREASED [None]
  - BLISTER [None]
  - CARDIOVASCULAR DISORDER [None]
  - ANGINA PECTORIS [None]
  - MITRAL VALVE INCOMPETENCE [None]
  - AORTIC VALVE INCOMPETENCE [None]
  - DECREASED APPETITE [None]
  - DIZZINESS [None]
  - REGURGITATION [None]
  - PULMONARY CONGESTION [None]
  - CAROTID BRUIT [None]
  - BLOOD GLUCOSE INCREASED [None]
